FAERS Safety Report 17042676 (Version 2)
Quarter: 2022Q2

REPORT INFORMATION
  Report Type: Spontaneous
  Country: CA (occurrence: CA)
  Receive Date: 20191118
  Receipt Date: 20220418
  Transmission Date: 20220721
  Serious: Yes (Hospitalization, Other)
  Sender: FDA-Public Use
  Company Number: CA-PFIZER INC-2019490328

PATIENT
  Age: 44 Year
  Sex: Female

DRUGS (12)
  1. VINCRISTINE SULFATE [Suspect]
     Active Substance: VINCRISTINE SULFATE
     Indication: Lymphoplasmacytoid lymphoma/immunocytoma
     Dosage: UNK
     Route: 065
  2. VINCRISTINE SULFATE [Suspect]
     Active Substance: VINCRISTINE SULFATE
     Dosage: UNK, CYCLIC
     Route: 065
  3. CYCLOPHOSPHAMIDE [Suspect]
     Active Substance: CYCLOPHOSPHAMIDE
     Dosage: UNK
     Route: 005
  4. PREDNISONE [Suspect]
     Active Substance: PREDNISONE
     Indication: Lymphoplasmacytoid lymphoma/immunocytoma
     Dosage: UNK, CYCLIC
     Route: 065
  5. PREDNISONE [Suspect]
     Active Substance: PREDNISONE
     Indication: Lymphoplasmacytoid lymphoma/immunocytoma
     Dosage: UNK, CYCLIC
  6. RITUXAN [Suspect]
     Active Substance: RITUXIMAB
     Indication: Lymphoplasmacytoid lymphoma/immunocytoma
     Dosage: UNK, CYCLIC
     Route: 042
  7. RITUXAN [Suspect]
     Active Substance: RITUXIMAB
     Dosage: UNK, CYCLIC
     Route: 065
  8. TREANDA [Suspect]
     Active Substance: BENDAMUSTINE HYDROCHLORIDE
     Dosage: UNK
     Route: 042
  9. BENDAMUSTINE HYDROCHLORIDE [Suspect]
     Active Substance: BENDAMUSTINE HYDROCHLORIDE
     Indication: Lymphoplasmacytoid lymphoma/immunocytoma
     Dosage: UNK
     Route: 042
  10. BENDAMUSTINE HYDROCHLORIDE [Suspect]
     Active Substance: BENDAMUSTINE HYDROCHLORIDE
     Dosage: UNK, CYCLIC
     Route: 065
  11. CYCLOPHOSPHAMIDE [Suspect]
     Active Substance: CYCLOPHOSPHAMIDE
     Indication: Lymphoplasmacytoid lymphoma/immunocytoma
     Dosage: UNK, CYCLIC
     Route: 065
  12. RITUXIMAB [Suspect]
     Active Substance: RITUXIMAB
     Route: 041

REACTIONS (10)
  - Alopecia [Unknown]
  - Blood lactate dehydrogenase increased [Unknown]
  - Second primary malignancy [Unknown]
  - Diffuse large B-cell lymphoma [Unknown]
  - Non-Hodgkin^s lymphoma [Unknown]
  - Fear of injection [Unknown]
  - Pancytopenia [Unknown]
  - Erythropoiesis abnormal [Unknown]
  - Hypoaesthesia oral [Unknown]
  - Neoplasm progression [Unknown]
